FAERS Safety Report 6711878-0 (Version None)
Quarter: 2010Q2

REPORT INFORMATION
  Report Type: 
  Country: None (occurrence: None)
  Receive Date: 20100505
  Receipt Date: 20100430
  Transmission Date: 20101027
  Serious: Yes (Hospitalization, Other)
  Sender: FDA-Public Use
  Company Number: US-ELI_LILLY_AND_COMPANY-US201004008602

PATIENT
  Sex: Female
  Weight: 136.5 kg

DRUGS (12)
  1. BYETTA [Suspect]
     Indication: TYPE 2 DIABETES MELLITUS
     Dosage: 5 UG, 2/D
     Route: 058
  2. BYETTA [Suspect]
     Dosage: 10 UG, 2/D
     Route: 058
     Dates: start: 20090101
  3. ZOCOR [Concomitant]
     Dosage: 40 MG, DAILY (1/D)
  4. LYRICA [Concomitant]
     Dosage: 150 MG, UNK
  5. FUROSEMIDE [Concomitant]
     Dosage: 40 MG, DAILY (1/D)
  6. COUMADIN [Concomitant]
     Dosage: 4 MG, DAILY (1/D)
  7. PROVERA [Concomitant]
     Indication: HORMONE REPLACEMENT THERAPY
     Dosage: 5 MG, DAILY (1/D)
  8. PRILOSEC [Concomitant]
     Dosage: 40 MG, DAILY (1/D)
  9. VITAMIN D [Concomitant]
     Dosage: 50000 MG, WEEKLY (1/W)
  10. GLUCOPHAGE XR [Concomitant]
     Indication: TYPE 2 DIABETES MELLITUS
     Dosage: 1000 MG, 2/D
  11. GLIMEPIRIDE [Concomitant]
     Indication: TYPE 2 DIABETES MELLITUS
  12. PREMARIN [Concomitant]
     Indication: MENOPAUSE
     Dosage: 0.625 MG, UNK

REACTIONS (2)
  - ARTHROPATHY [None]
  - DEPRESSION [None]
